FAERS Safety Report 4381587-4 (Version None)
Quarter: 2004Q2

REPORT INFORMATION
  Report Type: 
  Country: None (occurrence: None)
  Receive Date: 20040614
  Receipt Date: 20030801
  Transmission Date: 20050107
  Serious: Yes (Disabling)
  Sender: FDA-Public Use
  Company Number: WAES 0308USA00183

PATIENT
  Age: 61 Year
  Sex: Male

DRUGS (3)
  1. COZAAR [Suspect]
     Indication: HYPERTENSION
     Dosage: 50 MG/DAILY/PO
     Route: 048
     Dates: start: 20030610
  2. FLOMAX [Concomitant]
  3. VIOXX [Concomitant]

REACTIONS (1)
  - ANGINA PECTORIS [None]
